FAERS Safety Report 5738277-2 (Version None)
Quarter: 2008Q2

REPORT INFORMATION
  Report Type: 
  Country: None (occurrence: None)
  Receive Date: 20080514
  Receipt Date: 20080507
  Transmission Date: 20081010
  Serious: Yes (Other)
  Sender: FDA-Public Use
  Company Number: US-PFIZER INC-2008040035

PATIENT
  Sex: Female
  Weight: 88.5 kg

DRUGS (9)
  1. LIPITOR [Suspect]
     Indication: BLOOD CHOLESTEROL INCREASED
  2. ARICEPT [Suspect]
     Indication: DEMENTIA
     Dates: start: 20080101, end: 20080101
  3. CARDIZEM CD [Concomitant]
     Dosage: DAILY DOSE:240MG
  4. ACETYLSALICYLIC ACID SRT [Concomitant]
     Dosage: DAILY DOSE:81MG
  5. COZAAR [Concomitant]
     Dosage: DAILY DOSE:10MG
  6. DYAZIDE [Concomitant]
     Dosage: TEXT:37.5/25MG 1/2 OF A TABLET
  7. LASIX [Concomitant]
     Dosage: DAILY DOSE:20MG
  8. CALCITRIOL [Concomitant]
     Dosage: FREQ:3 DAYS A WEEK, MONDAY, WEDNESDAY, FRIFAY
  9. VITAMIN B [Concomitant]
     Dosage: DAILY DOSE:1ML

REACTIONS (5)
  - DEMENTIA [None]
  - MEMORY IMPAIRMENT [None]
  - PERSONALITY CHANGE [None]
  - SCREAMING [None]
  - STOMACH DISCOMFORT [None]
